FAERS Safety Report 12085195 (Version 1)
Quarter: 2016Q1

REPORT INFORMATION
  Report Type: Spontaneous
  Country: US (occurrence: US)
  Receive Date: 20160217
  Receipt Date: 20160217
  Transmission Date: 20160526
  Serious: Yes (Hospitalization, Other)
  Sender: FDA-Public Use
  Company Number: US-GE HEALTHCARE MEDICAL DIAGNOSTICS-OPTN-PR-1602S-0001

PATIENT
  Age: 50 Year
  Sex: Male
  Weight: 141.8 kg

DRUGS (3)
  1. OPTISON [Suspect]
     Active Substance: ALBUMIN (HUMAN)
     Indication: CHEST PAIN
     Route: 042
     Dates: start: 20160209, end: 20160209
  2. OPTISON [Suspect]
     Active Substance: ALBUMIN (HUMAN)
     Indication: HYPERTENSION
  3. OPTISON [Suspect]
     Active Substance: ALBUMIN (HUMAN)
     Indication: DIAGNOSTIC PROCEDURE

REACTIONS (1)
  - Hypersensitivity [Recovering/Resolving]

NARRATIVE: CASE EVENT DATE: 20160209
